FAERS Safety Report 23518873 (Version 1)
Quarter: 2024Q1

REPORT INFORMATION
  Report Type: Spontaneous
  Country: US (occurrence: None)
  Receive Date: 20240213
  Receipt Date: 20240213
  Transmission Date: 20240410
  Serious: Yes (Congenital Anomaly)
  Sender: FDA-Public Use
  Company Number: None

PATIENT
  Age: 24 Month
  Sex: Male
  Weight: 3.3 kg

DRUGS (4)
  1. ARIPIPRAZOLE [Suspect]
     Active Substance: ARIPIPRAZOLE
     Indication: Depression
     Dates: start: 20210502
  2. SERTRALINE [Concomitant]
     Active Substance: SERTRALINE HYDROCHLORIDE
  3. BUPROPION [Concomitant]
     Active Substance: BUPROPION
  4. LEVOTHYROXINE [Concomitant]

REACTIONS (11)
  - Foetal exposure during pregnancy [None]
  - Tachycardia foetal [None]
  - Amniotic cavity infection [None]
  - Neonatal respiratory distress [None]
  - Hypotonia neonatal [None]
  - Pulmonary oedema neonatal [None]
  - Cardiac murmur [None]
  - Atrial septal defect [None]
  - Patent ductus arteriosus [None]
  - Ventricular septal defect [None]
  - Laryngomalacia [None]

NARRATIVE: CASE EVENT DATE: 20240125
